FAERS Safety Report 10147423 (Version 1)
Quarter: 2014Q2

REPORT INFORMATION
  Report Type: Spontaneous
  Country: US (occurrence: US)
  Receive Date: 20140501
  Receipt Date: 20140501
  Transmission Date: 20141212
  Serious: No
  Sender: FDA-Public Use
  Company Number: US-009507513-1404USA014055

PATIENT
  Sex: Female

DRUGS (2)
  1. JANUVIA [Suspect]
     Route: 048
  2. METFORMIN [Concomitant]
     Dosage: 500 MG, UNK

REACTIONS (1)
  - Urticaria [Unknown]
